FAERS Safety Report 6786167-9 (Version None)
Quarter: 2010Q2

REPORT INFORMATION
  Report Type: 
  Country: None (occurrence: None)
  Receive Date: 20100622
  Receipt Date: 20100622
  Transmission Date: 20101027
  Serious: Yes (Life-Threatening, Hospitalization)
  Sender: FDA-Public Use
  Company Number: None

PATIENT
  Age: 53 Year
  Sex: Female
  Weight: 92.9874 kg

DRUGS (1)
  1. SUDAFED S.A. [Suspect]
     Indication: HYPERSENSITIVITY
     Dosage: 1 TABLET 2X/DAY PO
     Route: 048
     Dates: start: 20100604, end: 20100616

REACTIONS (7)
  - AORTIC DISSECTION [None]
  - CHEST PAIN [None]
  - COMMUNICATION DISORDER [None]
  - HAEMORRHAGE [None]
  - MALAISE [None]
  - PALPITATIONS [None]
  - PRODUCT LABEL ISSUE [None]
